FAERS Safety Report 4504428-0 (Version None)
Quarter: 2004Q4

REPORT INFORMATION
  Report Type: 
  Country: None (occurrence: None)
  Receive Date: 20041116
  Receipt Date: 20041101
  Transmission Date: 20050328
  Serious: Yes (Hospitalization)
  Sender: FDA-Public Use
  Company Number: 20041100481

PATIENT
  Age: 34 Year
  Sex: Female

DRUGS (6)
  1. LORAZEPAM [Suspect]
     Indication: INSOMNIA
     Dosage: 2 MG ONCE
     Dates: start: 20040706, end: 20040706
  2. LORAZEPAM [Suspect]
     Indication: INSOMNIA
     Dosage: 0.5 MG ONCE
     Dates: start: 20040707, end: 20040707
  3. PROMETHAZINE [Suspect]
     Indication: NAUSEA
     Dosage: 50 MG IM
     Route: 030
     Dates: start: 20040707
  4. PROMETHAZINE [Suspect]
     Indication: VOMITING
     Dosage: 50 MG IM
     Route: 030
     Dates: start: 20040707
  5. STEROIDS [Concomitant]
  6. ARIPIPRAZOLE/ PLACEBO [Concomitant]

REACTIONS (11)
  - ARRHYTHMIA [None]
  - BALANCE DISORDER [None]
  - DEPRESSED LEVEL OF CONSCIOUSNESS [None]
  - NAUSEA [None]
  - REFUSAL OF TREATMENT BY PATIENT [None]
  - SEDATION [None]
  - SLEEP APNOEA SYNDROME [None]
  - SNORING [None]
  - SOMNOLENCE [None]
  - SYNCOPE [None]
  - VOMITING [None]
